FAERS Safety Report 13256477 (Version 1)
Quarter: 2017Q1

REPORT INFORMATION
  Report Type: Spontaneous
  Country: TW (occurrence: TW)
  Receive Date: 20170221
  Receipt Date: 20170221
  Transmission Date: 20170428
  Serious: Yes (Hospitalization)
  Sender: FDA-Public Use
  Company Number: TW-DEPOMED, INC.-TW-2017DEP000358

PATIENT
  Age: 65 Year
  Sex: Male

DRUGS (1)
  1. DICLOFENAC [Suspect]
     Active Substance: DICLOFENAC
     Indication: PRODUCT USED FOR UNKNOWN INDICATION
     Dosage: UNK

REACTIONS (7)
  - Drug reaction with eosinophilia and systemic symptoms [Unknown]
  - Eczema [Unknown]
  - Dermatitis [Unknown]
  - Rash [Unknown]
  - Angiopathy [Unknown]
  - Renal impairment [Unknown]
  - Lymphocyte morphology abnormal [Unknown]
